FAERS Safety Report 18365315 (Version 1)
Quarter: 2020Q4

REPORT INFORMATION
  Report Type: Spontaneous
  Country: IE (occurrence: IE)
  Receive Date: 20201009
  Receipt Date: 20201009
  Transmission Date: 20210114
  Serious: Yes (Disabling)
  Sender: FDA-Public Use
  Company Number: None

PATIENT
  Age: 51 Year
  Sex: Female
  Weight: 91.35 kg

DRUGS (3)
  1. VIMOVO [Suspect]
     Active Substance: ESOMEPRAZOLE MAGNESIUM\NAPROXEN
     Indication: ARTHRALGIA
     Route: 048
     Dates: start: 20190915, end: 20190918
  2. LITHIUM. [Concomitant]
     Active Substance: LITHIUM
  3. OLANZAPINE. [Concomitant]
     Active Substance: OLANZAPINE

REACTIONS (6)
  - Insomnia [None]
  - Disturbance in attention [None]
  - Amnesia [None]
  - Loss of libido [None]
  - Cognitive disorder [None]
  - Flat affect [None]

NARRATIVE: CASE EVENT DATE: 20190915
